FAERS Safety Report 16972505 (Version 2)
Quarter: 2019Q4

REPORT INFORMATION
  Report Type: Report from Study
  Country: CO (occurrence: CO)
  Receive Date: 20191029
  Receipt Date: 20191219
  Transmission Date: 20200122
  Serious: Yes (Hospitalization, Disabling, Other)
  Sender: FDA-Public Use
  Company Number: CO-BRISTOL-MYERS SQUIBB COMPANY-BMS-2019-082997

PATIENT
  Age: 58 Year
  Sex: Female

DRUGS (4)
  1. DICLOFENAC [Concomitant]
     Active Substance: DICLOFENAC
     Indication: PRODUCT USED FOR UNKNOWN INDICATION
     Dosage: UNK
     Route: 065
  2. NIVOLUMAB [Suspect]
     Active Substance: NIVOLUMAB
     Indication: RENAL CANCER
     Dosage: 204 MILLIGRAM, Q2WK
     Route: 042
     Dates: start: 20190618, end: 20190911
  3. DEXAMETHASONE. [Concomitant]
     Active Substance: DEXAMETHASONE
     Indication: PRODUCT USED FOR UNKNOWN INDICATION
     Dosage: UNK
     Route: 065
  4. HYDROMORPHONE [Concomitant]
     Active Substance: HYDROMORPHONE
     Indication: PRODUCT USED FOR UNKNOWN INDICATION
     Dosage: UNK
     Route: 065

REACTIONS (13)
  - Anaemia [Recovering/Resolving]
  - Pain in extremity [Recovering/Resolving]
  - Postoperative wound infection [Recovering/Resolving]
  - Gait inability [Unknown]
  - Platelet count decreased [Unknown]
  - Inflammation [Recovering/Resolving]
  - Vertebral column mass [Recovering/Resolving]
  - Pain [Recovering/Resolving]
  - Paralysis [Recovering/Resolving]
  - Infection [Recovering/Resolving]
  - Anal sphincter atony [Recovering/Resolving]
  - Incision site haemorrhage [Recovering/Resolving]
  - Spinal pain [Recovering/Resolving]

NARRATIVE: CASE EVENT DATE: 20190820
